FAERS Safety Report 6587233-3 (Version None)
Quarter: 2010Q1

REPORT INFORMATION
  Report Type: 
  Country: None (occurrence: None)
  Receive Date: 20100217
  Receipt Date: 20090506
  Transmission Date: 20100710
  Serious: Yes (Other)
  Sender: FDA-Public Use
  Company Number: US-ALLERGAN-0906324US

PATIENT

DRUGS (1)
  1. BOTOX [Suspect]
     Indication: TORTICOLLIS

REACTIONS (1)
  - MUSCULAR WEAKNESS [None]
